FAERS Safety Report 8065514-4 (Version None)
Quarter: 2012Q1

REPORT INFORMATION
  Report Type: 
  Country: None (occurrence: None)
  Receive Date: 20120124
  Receipt Date: 20120116
  Transmission Date: 20120608
  Serious: Yes (Other)
  Sender: FDA-Public Use
  Company Number: US-ASTELLAS-2012US000670

PATIENT

DRUGS (2)
  1. ERLOTINIB HYDROCHLORIDE [Suspect]
     Indication: NEOPLASM
     Dosage: 75 MG, UNKNOWN/D
     Route: 048
  2. VINFLUNINE [Suspect]
     Indication: NEOPLASM
     Dosage: 250 MG/M2, UNKNOWN/D
     Route: 042

REACTIONS (3)
  - ORAL PAIN [None]
  - MYALGIA [None]
  - DEHYDRATION [None]
